FAERS Safety Report 23177124 (Version 1)
Quarter: 2023Q4

REPORT INFORMATION
  Report Type: Spontaneous
  Country: US (occurrence: None)
  Receive Date: 20231111
  Receipt Date: 20231111
  Transmission Date: 20240109
  Serious: No
  Sender: FDA-Public Use
  Company Number: None

PATIENT
  Age: 42 Year
  Sex: Female

DRUGS (1)
  1. SUN BUM SUNSCREEN LIP BALM BROAD SPECTRUM SPF 30 MANGO (AVOBENZONE\HOM [Suspect]
     Active Substance: AVOBENZONE\HOMOSALATE\OCTISALATE\OCTOCRYLENE

REACTIONS (5)
  - Lip swelling [None]
  - Lip haemorrhage [None]
  - Lip pain [None]
  - Lip blister [None]
  - Discomfort [None]

NARRATIVE: CASE EVENT DATE: 20231111
